FAERS Safety Report 8602317 (Version 2)
Quarter: 2012Q4

REPORT INFORMATION
  Report Type: Spontaneous
  Country: AU (occurrence: None)
  Receive Date: 20120524
  Receipt Date: 20120831
  Transmission Date: 20130627
  Serious: Yes (Other)
  Sender: FDA-Public Use
  Company Number: 2012-2202

PATIENT
  Sex: Female

DRUGS (5)
  1. DYSPORT [Suspect]
     Indication: SKIN WRINKLING
     Dosage: 110 UNITS (110 UNITS, SINGLE CYCLE), INTRAMUSCULAR
     Route: 030
     Dates: start: 20120427, end: 20120427
  2. DYSPORT [Suspect]
     Indication: SKIN WRINKLING
     Dosage: 110 UNITS (110 UNITS, SINGLE CYCLE), INTRAMUSCULAR
     Route: 030
     Dates: start: 20120427, end: 20120427
  3. DYSPORT [Suspect]
     Indication: SKIN WRINKLING
     Dosage: 110 UNITS (110 UNITS, SINGLE CYCLE), INTRAMUSCULAR
     Route: 030
     Dates: start: 20120427, end: 20120427
  4. DYSPORT [Suspect]
     Indication: OFF LABEL USE
     Dosage: 110 UNITS (110 UNITS, SINGLE CYCLE), INTRAMUSCULAR
     Route: 030
     Dates: start: 20120427, end: 20120427
  5. ABOBOTULINUMTOXINA [Suspect]

REACTIONS (1)
  - CONVULSION [None]
